FAERS Safety Report 4424861-5 (Version None)
Quarter: 2004Q3

REPORT INFORMATION
  Report Type: 
  Country: None (occurrence: None)
  Receive Date: 20040809
  Receipt Date: 20040726
  Transmission Date: 20050211
  Serious: Yes (Hospitalization)
  Sender: FDA-Public Use
  Company Number: 2004-DE-03717DE

PATIENT
  Age: 59 Year
  Sex: Male

DRUGS (2)
  1. MICARDIS HCT [Suspect]
     Indication: HYPERTENSION
     Dosage: STRENGTH: 80 MG TELMISARTAN AND 12.5 MG HYDROCHLOROTHIAZIDE; PO
     Route: 048
     Dates: start: 20020601
  2. LEVOTHYROXINE SODIUM [Concomitant]

REACTIONS (5)
  - ARTHRALGIA [None]
  - BACK PAIN [None]
  - INFLUENZA [None]
  - MOVEMENT DISORDER [None]
  - MYALGIA [None]
